FAERS Safety Report 21824753 (Version 1)
Quarter: 2023Q1

REPORT INFORMATION
  Report Type: Spontaneous
  Country: FR (occurrence: FR)
  Receive Date: 20230105
  Receipt Date: 20230105
  Transmission Date: 20230417
  Serious: Yes (Other)
  Sender: FDA-Public Use
  Company Number: FR-DENTSPLY-2022SCDP000383

PATIENT
  Age: 2 Month
  Sex: Male
  Weight: 5.07 kg

DRUGS (1)
  1. LIDOCAINE\PRILOCAINE [Suspect]
     Active Substance: LIDOCAINE\PRILOCAINE
     Indication: Local anaesthesia
     Dosage: 3 DOSAGE FORM OF EMLA PATCH 5%, SKIN ADHESIVE DRESSING
     Route: 003
     Dates: start: 20221213, end: 20221213

REACTIONS (2)
  - Incorrect dose administered [Recovered/Resolved]
  - Methaemoglobinaemia [Recovered/Resolved]

NARRATIVE: CASE EVENT DATE: 20221213
